FAERS Safety Report 16689015 (Version 1)
Quarter: 2019Q3

REPORT INFORMATION
  Report Type: Spontaneous
  Country: DE (occurrence: DE)
  Receive Date: 20190809
  Receipt Date: 20190809
  Transmission Date: 20191004
  Serious: Yes (Hospitalization)
  Sender: FDA-Public Use
  Company Number: DE-BAYER-2019-145956

PATIENT
  Sex: Female

DRUGS (5)
  1. COTRIM [Suspect]
     Active Substance: SULFAMETHOXAZOLE\TRIMETHOPRIM
     Indication: CYSTITIS NONINFECTIVE
  2. OFLOX [Suspect]
     Active Substance: OFLOXACIN
     Indication: CYSTITIS NONINFECTIVE
  3. CIPROBAY [Suspect]
     Active Substance: CIPROFLOXACIN
     Indication: BRONCHITIS
  4. OFLOX [Suspect]
     Active Substance: OFLOXACIN
     Indication: CYSTITIS NONINFECTIVE
  5. CEFUROXIME AXETIL. [Suspect]
     Active Substance: CEFUROXIME AXETIL
     Indication: CYSTITIS NONINFECTIVE

REACTIONS (13)
  - Back pain [Unknown]
  - Pain in extremity [Unknown]
  - Formication [Unknown]
  - Presyncope [Unknown]
  - Tendon rupture [Unknown]
  - Fibromyalgia [Unknown]
  - Musculoskeletal pain [Unknown]
  - General physical condition decreased [Unknown]
  - Anxiety [Unknown]
  - Tendon disorder [Unknown]
  - Arthralgia [Unknown]
  - Muscular weakness [Unknown]
  - Illusion [Unknown]

NARRATIVE: CASE EVENT DATE: 2019
